FAERS Safety Report 15903274 (Version 2)
Quarter: 2019Q2

REPORT INFORMATION
  Report Type: Spontaneous
  Country: CH (occurrence: US)
  Receive Date: 20190202
  Receipt Date: 20190417
  Transmission Date: 20190711
  Serious: Yes (Other)
  Sender: FDA-Public Use
  Company Number: PHHY2019US022929

PATIENT
  Age: 14 Year
  Sex: Female

DRUGS (3)
  1. ZORTRESS [Suspect]
     Active Substance: EVEROLIMUS
     Indication: ANAPLASTIC ASTROCYTOMA
     Dosage: 0-6 MG QD
     Route: 048
     Dates: start: 20131007, end: 20131211
  2. TEMODAR [Suspect]
     Active Substance: TEMOZOLOMIDE
     Indication: ANAPLASTIC ASTROCYTOMA
     Dosage: 75 MG/M2, QD
     Route: 065
     Dates: start: 20131007, end: 20131115
  3. TEMODAR [Suspect]
     Active Substance: TEMOZOLOMIDE
     Dosage: 160 MG/M2, QD (160 MG/M2/DAY FOR 5 DAYS)
     Route: 065

REACTIONS (3)
  - Pancytopenia [Unknown]
  - Mucosal inflammation [Unknown]
  - Product use in unapproved indication [Unknown]
